FAERS Safety Report 5411567-9 (Version None)
Quarter: 2007Q3

REPORT INFORMATION
  Report Type: 
  Country: None (occurrence: None)
  Receive Date: 20070810
  Receipt Date: 20070730
  Transmission Date: 20080115
  Serious: Yes (Death)
  Sender: FDA-Public Use
  Company Number: JP-PFIZER INC-2007060101

PATIENT
  Age: 32 Year
  Sex: Male
  Weight: 69 kg

DRUGS (9)
  1. VFEND [Suspect]
     Route: 042
     Dates: start: 20060920, end: 20060920
  2. VFEND [Suspect]
     Route: 042
     Dates: start: 20060921, end: 20061110
  3. BIAPENEM [Concomitant]
     Route: 042
  4. ACYCLOVIR [Concomitant]
     Route: 042
  5. SANDIMMUNE [Concomitant]
     Route: 042
  6. CARBENIN [Concomitant]
     Route: 042
     Dates: start: 20061003, end: 20061013
  7. MEROPEN [Concomitant]
     Route: 042
  8. HABEKACIN [Concomitant]
     Route: 042
     Dates: start: 20060925, end: 20061013
  9. TARGOCID [Concomitant]
     Route: 042

REACTIONS (1)
  - BLOOD STEM CELL TRANSPLANT FAILURE [None]
